FAERS Safety Report 8301190-0 (Version None)
Quarter: 2012Q2

REPORT INFORMATION
  Report Type: 
  Country: None (occurrence: None)
  Receive Date: 20120420
  Receipt Date: 20120410
  Transmission Date: 20120825
  Serious: Yes (Hospitalization)
  Sender: FDA-Public Use
  Company Number: JP-VERTEX PHARMACEUTICALS INC.-AE-2012-005293

PATIENT
  Age: 68 Year
  Sex: Female

DRUGS (13)
  1. TALION OD [Concomitant]
     Route: 048
  2. DIOVAN [Concomitant]
     Route: 048
  3. SELBEX [Concomitant]
     Route: 048
  4. URSO 250 [Concomitant]
     Route: 048
  5. LANSOPRAZOLE [Concomitant]
     Route: 048
     Dates: start: 20120217
  6. TELAVIC (TELAPREVIR) [Suspect]
     Indication: HEPATITIS C
     Route: 048
     Dates: start: 20120125, end: 20120229
  7. REBETOL [Concomitant]
     Route: 048
     Dates: start: 20120211, end: 20120302
  8. LOXONIN [Concomitant]
     Route: 048
     Dates: start: 20120125
  9. PEG-INTRON [Concomitant]
     Route: 051
     Dates: start: 20120217, end: 20120224
  10. LEVOTHYROXINE SODIUM [Concomitant]
     Route: 048
  11. REBETOL [Concomitant]
     Indication: HEPATITIS C
     Route: 048
     Dates: start: 20120125, end: 20120210
  12. PEG-INTRON [Concomitant]
     Indication: HEPATITIS C
     Route: 051
     Dates: start: 20120125, end: 20120210
  13. TELAVIC (TELAPREVIR) [Suspect]
     Route: 048
     Dates: start: 20120301

REACTIONS (1)
  - SUDDEN HEARING LOSS [None]
